FAERS Safety Report 9646387 (Version 1)
Quarter: 2013Q4

REPORT INFORMATION
  Report Type: Spontaneous
  Country: FR (occurrence: None)
  Receive Date: 20131024
  Receipt Date: 20131024
  Transmission Date: 20140711
  Serious: Yes (Hospitalization)
  Sender: FDA-Public Use
  Company Number: 1919953

PATIENT
  Age: 54 Year
  Sex: Male

DRUGS (3)
  1. CARBOPLATIN [Suspect]
     Indication: PRODUCT USED FOR UNKNOWN INDICATION
     Route: 041
     Dates: start: 20090723, end: 20090915
  2. FLUOROURACILE [Suspect]
     Indication: KERATINISING SQUAMOUS CELL CARCINOMA OF NASOPHARYNX
     Route: 041
     Dates: start: 20090216, end: 20090915
  3. CISPLATINE MERCK [Suspect]
     Indication: KERATINISING SQUAMOUS CELL CARCINOMA OF NASOPHARYNX
     Route: 041
     Dates: start: 20090216, end: 20090427

REACTIONS (3)
  - Ulcerative keratitis [None]
  - Conjunctivitis [None]
  - Keratitis [None]
